FAERS Safety Report 9512405 (Version 1)
Quarter: 2013Q1

REPORT INFORMATION
  Report Type: Spontaneous
  Country: US (occurrence: None)
  Receive Date: 20130305
  Receipt Date: 20130305
  Transmission Date: 20140127
  Serious: Yes (Other)
  Sender: FDA-Public Use
  Company Number: 163-21880-12052032

PATIENT
  Age: 73 Year
  Sex: Female

DRUGS (7)
  1. REVLIMID (LENALIDOMIDE) (25 MILLIGRAM, CAPSULES) [Suspect]
     Indication: PLASMA CELL MYELOMA
     Dosage: 25 MG, 21 IN 28 D, PO
     Route: 048
     Dates: start: 20110922
  2. METFORMIN (METFORMIN) (UNKNOWN) [Concomitant]
  3. METOPROLOL (METOPROLOL) (UNKNOWN)? [Concomitant]
  4. VERAPAMIL (VERAPAMIL) (UNKNOWN) [Concomitant]
  5. PREVACID (LANSOPRAZOLE) (UNKNOWN) [Concomitant]
  6. SIMVASTATIN [Concomitant]
  7. VITAMIN B12 (CYANOCOBALAMIN) (UNKNOWN) [Concomitant]

REACTIONS (2)
  - Cough [None]
  - Joint swelling [None]
